FAERS Safety Report 11412453 (Version 1)
Quarter: 2015Q3

REPORT INFORMATION
  Report Type: Spontaneous
  Country: US (occurrence: US)
  Receive Date: 20150824
  Receipt Date: 20150824
  Transmission Date: 20151125
  Serious: No
  Sender: FDA-Public Use
  Company Number: US-JNJFOC-20150812965

PATIENT
  Age: 36 Year
  Sex: Male
  Weight: 78.47 kg

DRUGS (3)
  1. MENS ROGAINE EXTRA STRENGTH [Suspect]
     Active Substance: MINOXIDIL
     Indication: ALOPECIA
     Dosage: HALF CAPFUL
     Route: 061
  2. ACID REFLUX MEDICATION [Concomitant]
     Active Substance: UNSPECIFIED INGREDIENT
     Indication: GASTROOESOPHAGEAL REFLUX DISEASE
     Dosage: AS NEEDED, COUPLE OF YEARS
     Route: 065
  3. MENS ROGAINE EXTRA STRENGTH [Suspect]
     Active Substance: MINOXIDIL
     Indication: ALOPECIA
     Route: 061

REACTIONS (2)
  - Alopecia [Not Recovered/Not Resolved]
  - Treatment noncompliance [Not Recovered/Not Resolved]
